FAERS Safety Report 8881832 (Version 1)
Quarter: 2012Q4

REPORT INFORMATION
  Report Type: 
  Country: US (occurrence: US)
  Receive Date: 20121101
  Receipt Date: 20121101
  Transmission Date: 20130627
  Serious: No
  Sender: FDA-Public Use
  Company Number: US-PFIZER INC-2012269364

PATIENT

DRUGS (1)
  1. SOLU-MEDROL [Suspect]
     Dosage: once
     Dates: start: 2012

REACTIONS (1)
  - Urticaria [Unknown]
